FAERS Safety Report 4920739-9 (Version None)
Quarter: 2006Q1

REPORT INFORMATION
  Report Type: 
  Country: None (occurrence: None)
  Receive Date: 20060223
  Receipt Date: 20060214
  Transmission Date: 20060701
  Serious: Yes (Other)
  Sender: FDA-Public Use
  Company Number: BR-BOEHRINGER INGELHEIM PHARMACEUTICALS, INC.-2006-DE-00829GD

PATIENT
  Age: 36 Year
  Sex: Female

DRUGS (3)
  1. NEVIRAPINE [Suspect]
     Indication: HIV INFECTION CDC CATEGORY B2
     Route: 048
  2. STAVUDINE [Concomitant]
     Indication: HIV INFECTION CDC CATEGORY B2
  3. LAMIVUDINE [Concomitant]
     Indication: HIV INFECTION CDC CATEGORY B2

REACTIONS (4)
  - CHOLESTASIS [None]
  - DRUG TOXICITY [None]
  - RASH [None]
  - TRANSAMINASES INCREASED [None]
